FAERS Safety Report 4845043-9 (Version None)
Quarter: 2005Q4

REPORT INFORMATION
  Report Type: 
  Country: None (occurrence: None)
  Receive Date: 20051129
  Receipt Date: 20051117
  Transmission Date: 20060501
  Serious: Yes (Hospitalization)
  Sender: FDA-Public Use
  Company Number: 2005120335

PATIENT
  Age: 63 Year
  Sex: Male
  Weight: 75.8 kg

DRUGS (7)
  1. CAMPTOSAR [Suspect]
     Indication: COLON CANCER
     Dosage: (150 MG, 1 IN 1 WK), INTRAVENOUS
     Route: 042
     Dates: start: 20050726, end: 20050803
  2. TOMUDEX (RALTITREXED) [Suspect]
     Indication: COLON CANCER
     Dosage: 2 MG/M2 (ONCE), INTRAVENOUS
     Route: 042
     Dates: start: 20050726, end: 20050726
  3. PANTOPRAZOLE SODIUM [Concomitant]
  4. MORPHINE [Concomitant]
  5. ZOFRAN [Concomitant]
  6. DECADRON [Concomitant]
  7. GRAVOL TAB [Concomitant]

REACTIONS (3)
  - PAIN [None]
  - RASH [None]
  - SKIN EXFOLIATION [None]
